FAERS Safety Report 7211754-3 (Version None)
Quarter: 2011Q1

REPORT INFORMATION
  Report Type: 
  Country: None (occurrence: None)
  Receive Date: 20110105
  Receipt Date: 20101206
  Transmission Date: 20110831
  Serious: No
  Sender: FDA-Public Use
  Company Number: US-BAYER-2010-006274

PATIENT
  Sex: Male
  Weight: 88 kg

DRUGS (12)
  1. NEXIUM [Concomitant]
     Dosage: 40 MG, UNK
  2. ASPIRIN [Concomitant]
     Dosage: 325 MG, UNK
  3. CALCIUM W/VITAMIN D NOS [Concomitant]
     Dosage: 600 MG + D
  4. REQUIP [Concomitant]
  5. SPIRIVA [Concomitant]
  6. UROXATRAL [Concomitant]
  7. CARDIZEM [Concomitant]
     Dosage: 40 MG, UNK
  8. ALLEGRA [Concomitant]
  9. ZOCOR [Concomitant]
     Dosage: 40 MG, UNK
  10. ADVAIR [Concomitant]
  11. ALEVE (CAPLET) [Suspect]
     Indication: PAIN IN EXTREMITY
     Dosage: 2 DF, BID
     Route: 048
  12. CENTRUM [Concomitant]

REACTIONS (3)
  - FATIGUE [None]
  - CONTUSION [None]
  - DYSPNOEA [None]
